FAERS Safety Report 5018619-6 (Version None)
Quarter: 2006Q2

REPORT INFORMATION
  Report Type: 
  Country: None (occurrence: None)
  Receive Date: 20060414
  Receipt Date: 20060103
  Transmission Date: 20061013
  Serious: No
  Sender: FDA-Public Use
  Company Number: 2006SP000016

PATIENT
  Age: 68 Year
  Sex: Female
  Weight: 77.1115 kg

DRUGS (11)
  1. LUNESTA [Suspect]
     Indication: INITIAL INSOMNIA
     Dosage: SEE IMAGE
     Route: 048
     Dates: start: 20050501, end: 20050601
  2. LUNESTA [Suspect]
     Indication: INITIAL INSOMNIA
     Dosage: SEE IMAGE
     Route: 048
     Dates: start: 20050601, end: 20050701
  3. LUNESTA [Suspect]
     Indication: INITIAL INSOMNIA
     Dosage: SEE IMAGE
     Route: 048
     Dates: start: 20050701, end: 20051201
  4. ATENOLOL [Concomitant]
  5. NEURONTIN [Concomitant]
  6. FIORICET [Concomitant]
  7. ACIPHEX [Concomitant]
  8. ATORVASTATIN CALCIUM [Concomitant]
  9. LORTAB [Concomitant]
  10. FLONASE [Concomitant]
  11. TEGASEROD MALEATE [Concomitant]

REACTIONS (3)
  - DRUG INEFFECTIVE [None]
  - INCREASED UPPER AIRWAY SECRETION [None]
  - INITIAL INSOMNIA [None]
